FAERS Safety Report 7771083-6 (Version None)
Quarter: 2011Q3

REPORT INFORMATION
  Report Type: 
  Country: None (occurrence: None)
  Receive Date: 20110922
  Receipt Date: 20110429
  Transmission Date: 20111222
  Serious: Yes (Hospitalization)
  Sender: FDA-Public Use
  Company Number: US-ASTRAZENECA-2011SE24792

PATIENT
  Age: 60 Year
  Sex: Female

DRUGS (1)
  1. SEROQUEL XR [Suspect]
     Route: 048

REACTIONS (2)
  - AKATHISIA [None]
  - TREMOR [None]
